FAERS Safety Report 21920294 (Version 1)
Quarter: 2023Q1

REPORT INFORMATION
  Report Type: Spontaneous
  Country: US (occurrence: None)
  Receive Date: 20230127
  Receipt Date: 20230127
  Transmission Date: 20230418
  Serious: Yes (unspecified)
  Sender: FDA-Public Use
  Company Number: None

PATIENT
  Age: 48 Year
  Sex: Female

DRUGS (10)
  1. MYFEMBREE [Suspect]
     Active Substance: ESTRADIOL HEMIHYDRATE\NORETHINDRONE ACETATE\RELUGOLIX
     Indication: Heavy menstrual bleeding
     Dosage: FREQUENCY : DAILY;?
     Route: 048
     Dates: start: 20221126, end: 20221209
  2. MYFEMBREE [Suspect]
     Active Substance: ESTRADIOL HEMIHYDRATE\NORETHINDRONE ACETATE\RELUGOLIX
     Indication: Uterine leiomyoma
  3. VITAMIN D [Concomitant]
     Active Substance: VITAMIN D NOS
  4. VENOFER [Concomitant]
     Active Substance: IRON SUCROSE
  5. FERRITIN [Concomitant]
     Active Substance: FERRITIN
  6. FLOVENT HFA [Concomitant]
     Active Substance: FLUTICASONE PROPIONATE
  7. FLONASE [Concomitant]
     Active Substance: FLUTICASONE PROPIONATE
  8. Diclofenac topical gel [Concomitant]
  9. ALBUTEROL [Concomitant]
     Active Substance: ALBUTEROL
  10. Naphazoline-pheniramine ophthalmic solution [Concomitant]

REACTIONS (2)
  - Deep vein thrombosis [None]
  - Deep vein thrombosis [None]

NARRATIVE: CASE EVENT DATE: 20221209
